FAERS Safety Report 6681999-X (Version None)
Quarter: 2010Q2

REPORT INFORMATION
  Report Type: 
  Country: None (occurrence: None)
  Receive Date: 20100414
  Receipt Date: 20100414
  Transmission Date: 20101027
  Serious: Yes (Other)
  Sender: FDA-Public Use
  Company Number: None

PATIENT
  Age: 55 Year
  Sex: Female
  Weight: 56.6996 kg

DRUGS (2)
  1. LEXAPRO [Suspect]
     Indication: ANXIETY
     Dosage: 10 MG PO DAILY
     Route: 048
  2. BENADRYL [Suspect]
     Dosage: 50 MG PO Q6 PRN
     Route: 048

REACTIONS (2)
  - PRURITUS [None]
  - RASH ERYTHEMATOUS [None]
